FAERS Safety Report 7792957-6 (Version None)
Quarter: 2011Q4

REPORT INFORMATION
  Report Type: 
  Country: None (occurrence: None)
  Receive Date: 20111003
  Receipt Date: 20110926
  Transmission Date: 20120403
  Serious: Yes (Death, Hospitalization)
  Sender: FDA-Public Use
  Company Number: PHHY2011CO85580

PATIENT
  Age: 42 Year
  Sex: Male

DRUGS (5)
  1. GANCICLOVIR [Concomitant]
  2. METHYLPREDNISOLONE [Concomitant]
  3. MYCOPHENOLATE MOFETIL [Suspect]
     Indication: RENAL TRANSPLANT
  4. CYCLOSPORINE [Suspect]
     Indication: RENAL TRANSPLANT
  5. GLUCANTIME [Concomitant]

REACTIONS (15)
  - HEPATOSPLENOMEGALY [None]
  - LEUKOPENIA [None]
  - DISSEMINATED INTRAVASCULAR COAGULATION [None]
  - DELIRIUM [None]
  - COMPLICATIONS OF TRANSPLANTED KIDNEY [None]
  - STAPHYLOCOCCAL SEPSIS [None]
  - COAGULOPATHY [None]
  - PANCYTOPENIA [None]
  - SEPTIC SHOCK [None]
  - VISCERAL LEISHMANIASIS [None]
  - RESPIRATORY DISORDER [None]
  - GINGIVAL BLEEDING [None]
  - MENTAL IMPAIRMENT [None]
  - PYREXIA [None]
  - ANAEMIA [None]
